FAERS Safety Report 7981489-8 (Version None)
Quarter: 2011Q4

REPORT INFORMATION
  Report Type: 
  Country: None (occurrence: None)
  Receive Date: 20111215
  Receipt Date: 20111209
  Transmission Date: 20120403
  Serious: Yes (Hospitalization)
  Sender: FDA-Public Use
  Company Number: AU-PFIZER INC-2011301286

PATIENT
  Age: 25 Year
  Sex: Male

DRUGS (1)
  1. SUTENT [Suspect]
     Indication: THYROID CANCER METASTATIC
     Dosage: 37.5 MG, 1X/DAY FOUR WEEKS ON 2 WEEKS OFF
     Dates: start: 20100227

REACTIONS (3)
  - HEADACHE [None]
  - VISION BLURRED [None]
  - NAUSEA [None]
